FAERS Safety Report 11662902 (Version 1)
Quarter: 2015Q4

REPORT INFORMATION
  Report Type: Spontaneous
  Country: US (occurrence: US)
  Receive Date: 20151027
  Receipt Date: 20151027
  Transmission Date: 20160304
  Serious: No
  Sender: FDA-Public Use
  Company Number: US-MEDA-2014040059

PATIENT
  Age: 9 Year
  Sex: Female
  Weight: 34 kg

DRUGS (2)
  1. DYMISTA [Suspect]
     Active Substance: AZELASTINE HYDROCHLORIDE\FLUTICASONE PROPIONATE
     Dates: start: 20140417
  2. VERAMYST [Concomitant]
     Active Substance: FLUTICASONE FUROATE

REACTIONS (4)
  - Throat irritation [Unknown]
  - Product use issue [Unknown]
  - Increased viscosity of upper respiratory secretion [Unknown]
  - Discomfort [Recovered/Resolved]

NARRATIVE: CASE EVENT DATE: 20140417
